FAERS Safety Report 22901618 (Version 2)
Quarter: 2025Q2

REPORT INFORMATION
  Report Type: Spontaneous
  Country: ES (occurrence: ES)
  Receive Date: 20230904
  Receipt Date: 20250520
  Transmission Date: 20250717
  Serious: Yes (Death)
  Sender: TEVA
  Company Number: None

PATIENT
  Age: 70 Year
  Sex: Male
  Weight: 104 kg

DRUGS (9)
  1. ALLOPURINOL [Suspect]
     Active Substance: ALLOPURINOL
     Indication: Hyperuricaemia
     Dosage: DOSAGE TEXT: ALOPURINOL (318A)
     Route: 048
     Dates: start: 20150911, end: 20230508
  2. IOMERON [Suspect]
     Active Substance: IOMEPROL
     Indication: Computerised tomogram
     Route: 042
     Dates: start: 20230503, end: 20230503
  3. DAPAGLIFLOZIN [Concomitant]
     Active Substance: DAPAGLIFLOZIN
     Indication: Diabetes mellitus
     Dosage: DAPAGLIFLOZIN (8615A)
     Route: 048
     Dates: start: 20200616, end: 20230430
  4. DEXKETOPROFEN TROMETAMOL [Suspect]
     Active Substance: DEXKETOPROFEN TROMETAMOL
     Indication: Pain
     Route: 042
     Dates: start: 20230430, end: 20230502
  5. LAMOTRIGINE [Suspect]
     Active Substance: LAMOTRIGINE
     Indication: Neuralgia
     Dosage: DOSAGE TEXT: LAMOTRIGINA (2579A)
     Route: 048
     Dates: start: 20230427, end: 20230512
  6. METAMIZOLE MAGNESIUM [Suspect]
     Active Substance: METAMIZOLE MAGNESIUM
     Indication: Pain
     Route: 065
     Dates: start: 20230514, end: 20230514
  7. METFORMIN [Concomitant]
     Active Substance: METFORMIN HYDROCHLORIDE
     Indication: Diabetes mellitus
     Dosage: DOSAGE TEXT: METFORMINA (1359A)
     Route: 048
     Dates: start: 20200616, end: 20230430
  8. AMOXICILLIN\CLAVULANATE POTASSIUM [Suspect]
     Active Substance: AMOXICILLIN\CLAVULANATE POTASSIUM
     Indication: Rash maculo-papular
     Dosage: 875/125 MG TABLETS EFG
     Route: 065
     Dates: start: 20230507, end: 20230514
  9. SITAGLIPTIN [Concomitant]
     Active Substance: SITAGLIPTIN
     Indication: Diabetes mellitus
     Dosage: SITAGLIPTINA (8075A)
     Route: 048
     Dates: start: 20200616, end: 20230430

REACTIONS (2)
  - Toxic epidermal necrolysis [Fatal]
  - Upper gastrointestinal haemorrhage [Fatal]

NARRATIVE: CASE EVENT DATE: 20230521
